FAERS Safety Report 23903997 (Version 1)
Quarter: 2024Q2

REPORT INFORMATION
  Report Type: Spontaneous
  Country: AU (occurrence: AU)
  Receive Date: 20240527
  Receipt Date: 20240527
  Transmission Date: 20240716
  Serious: Yes (Hospitalization)
  Sender: FDA-Public Use
  Company Number: None

PATIENT
  Age: 53 Year
  Sex: Male

DRUGS (17)
  1. BORTEZOMIB [Suspect]
     Active Substance: BORTEZOMIB
     Indication: Plasma cell myeloma
     Dosage: 2.6 MG(LYOPHILIZED POWDER)
     Route: 058
     Dates: start: 20190319
  2. BORTEZOMIB [Suspect]
     Active Substance: BORTEZOMIB
     Dosage: 2.6 MG(LYOPHILIZED POWDER), MOST RECENT DOSE WAS ADMINISTERED ON 23-MAY-2019;
     Route: 058
     Dates: start: 20190523
  3. DEXAMETHASONE [Suspect]
     Active Substance: DEXAMETHASONE
     Indication: Plasma cell myeloma
     Dosage: 40 MG
     Route: 048
     Dates: start: 20190319
  4. DEXAMETHASONE [Suspect]
     Active Substance: DEXAMETHASONE
     Dosage: MOST RECENT DOSE ON 22-MAR-2019 00:00
     Route: 048
     Dates: start: 20190325
  5. LENALIDOMIDE [Suspect]
     Active Substance: LENALIDOMIDE
     Indication: Plasma cell myeloma
     Dosage: 10 MG
     Route: 048
     Dates: start: 20190319, end: 20190520
  6. LENALIDOMIDE [Suspect]
     Active Substance: LENALIDOMIDE
     Dosage: WITH MOST RECENT DOSE RECEIVED ON  20MAY2019
     Route: 048
     Dates: start: 20190520
  7. METOPROLOL TARTRATE [Concomitant]
     Active Substance: METOPROLOL TARTRATE
     Indication: Hypertension
     Dosage: 25 MG (INTERVAL: 1)
     Route: 048
     Dates: start: 20190412
  8. NEXIUM [Concomitant]
     Active Substance: ESOMEPRAZOLE MAGNESIUM
     Indication: Gastrooesophageal reflux disease
     Dosage: 40 MG (INTERVAL: 1)
     Route: 048
     Dates: start: 2016
  9. NOVORAPID [Concomitant]
     Active Substance: INSULIN ASPART
     Indication: Type 2 diabetes mellitus
     Dosage: UNK ( INTERVAL: 0)
     Route: 058
     Dates: start: 20190324
  10. OXYCODONE [Concomitant]
     Active Substance: OXYCODONE\OXYCODONE HYDROCHLORIDE
     Indication: Analgesic therapy
     Dosage: UNK
     Route: 048
     Dates: start: 201905
  11. PANTOPRAZOLE SODIUM [Concomitant]
     Active Substance: PANTOPRAZOLE SODIUM
     Indication: Pancreatitis
     Dosage: 40 MG
     Route: 065
     Dates: start: 20180328
  12. ACETAMINOPHEN [Concomitant]
     Active Substance: ACETAMINOPHEN
     Indication: Pancreatitis
     Dosage: 1 G ( INTERVAL: 0)
     Route: 048
     Dates: start: 20190325
  13. ACETAMINOPHEN [Concomitant]
     Active Substance: ACETAMINOPHEN
     Indication: Headache
  14. PROTAPHANE [Concomitant]
     Active Substance: INSULIN HUMAN
     Indication: Type 2 diabetes mellitus
     Dosage: UNK (INTERVAL: 1)
     Route: 058
     Dates: start: 20180326
  15. VELCADE [Concomitant]
     Active Substance: BORTEZOMIB
     Indication: Plasma cell myeloma
     Dosage: 2.6 G
     Route: 058
     Dates: start: 20190319
  16. VELCADE [Concomitant]
     Active Substance: BORTEZOMIB
     Dosage: 2.6 G
     Route: 058
     Dates: start: 20190523
  17. XYLOCAINE VISCOUS [Concomitant]
     Active Substance: LIDOCAINE HYDROCHLORIDE
     Indication: Mucositis management
     Dosage: 15 ML ( INTERVAL: 1)
     Route: 048
     Dates: start: 20190406

REACTIONS (2)
  - Non-cardiac chest pain [Recovered/Resolved with Sequelae]
  - Pneumonia [Recovered/Resolved]

NARRATIVE: CASE EVENT DATE: 20190523
